FAERS Safety Report 13445964 (Version 1)
Quarter: 2017Q2

REPORT INFORMATION
  Report Type: Spontaneous
  Country: US (occurrence: US)
  Receive Date: 20170417
  Receipt Date: 20170417
  Transmission Date: 20170830
  Serious: No
  Sender: FDA-Public Use
  Company Number: US-BION-006015

PATIENT
  Age: 18 Month
  Sex: Female

DRUGS (1)
  1. ALEVE [Suspect]
     Active Substance: NAPROXEN SODIUM
     Indication: PRODUCT USED FOR UNKNOWN INDICATION
     Dosage: 1 DOSAGE FORM, ONCE
     Route: 048
     Dates: start: 20170214, end: 20170214

REACTIONS (1)
  - Accidental exposure to product by child [Not Recovered/Not Resolved]

NARRATIVE: CASE EVENT DATE: 20170214
